FAERS Safety Report 19653568 (Version 2)
Quarter: 2021Q3

REPORT INFORMATION
  Report Type: Spontaneous
  Country: US (occurrence: US)
  Receive Date: 20210803
  Receipt Date: 20210810
  Transmission Date: 20211014
  Serious: No
  Sender: FDA-Public Use
  Company Number: US-PFIZER INC-2021338490

PATIENT
  Age: 34 Year
  Sex: Female
  Weight: 65.77 kg

DRUGS (4)
  1. ZYRTEC [Suspect]
     Active Substance: CETIRIZINE HYDROCHLORIDE
     Dosage: UNK
  2. BENADRYL [Suspect]
     Active Substance: DIPHENHYDRAMINE HYDROCHLORIDE
     Dosage: 50 MG Q6HRS (EVERY SIX HOURS)
     Route: 048
  3. PANTOPRAZOLE [Suspect]
     Active Substance: PANTOPRAZOLE
     Dosage: UNK
  4. PREDNISONE. [Suspect]
     Active Substance: PREDNISONE
     Dosage: 60 MG QDZ 5 DAYS (EVERY DAY)
     Route: 048

REACTIONS (11)
  - Nausea [Unknown]
  - Sleep deficit [Unknown]
  - Tachycardia [Unknown]
  - Agitation [Unknown]
  - Sleep disorder [Unknown]
  - Irritability [Unknown]
  - Drug ineffective [Unknown]
  - Anxiety [Unknown]
  - Insomnia [Unknown]
  - Gastritis [Unknown]
  - Condition aggravated [Unknown]
